FAERS Safety Report 20639110 (Version 1)
Quarter: 2022Q1

REPORT INFORMATION
  Report Type: Spontaneous
  Country: CA (occurrence: CA)
  Receive Date: 20220326
  Receipt Date: 20220326
  Transmission Date: 20220424
  Serious: Yes (Hospitalization, Other)
  Sender: FDA-Public Use
  Company Number: CA-JNJFOC-20220349011

PATIENT
  Age: 23 Year
  Sex: Female
  Weight: 69 kg

DRUGS (5)
  1. REMICADE [Suspect]
     Active Substance: INFLIXIMAB
     Indication: Colitis ulcerative
     Route: 042
  2. IRON [Concomitant]
     Active Substance: IRON
  3. METHYLPREDNISOLONE SODIUM SUCCINATE [Concomitant]
     Active Substance: METHYLPREDNISOLONE SODIUM SUCCINATE
     Route: 042
  4. PREDNISONE [Concomitant]
     Active Substance: PREDNISONE
     Route: 048
  5. SYNTHROID [Concomitant]
     Active Substance: LEVOTHYROXINE SODIUM

REACTIONS (4)
  - Pulmonary embolism [Unknown]
  - Phlebitis [Unknown]
  - Condition aggravated [Unknown]
  - Off label use [Unknown]
